FAERS Safety Report 7353704-5 (Version None)
Quarter: 2011Q1

REPORT INFORMATION
  Report Type: 
  Country: None (occurrence: None)
  Receive Date: 20110315
  Receipt Date: 20091113
  Transmission Date: 20110831
  Serious: Yes (Death, Hospitalization, Other)
  Sender: FDA-Public Use
  Company Number: US-BAYER-200939806NA

PATIENT
  Sex: Male
  Weight: 76.8 kg

DRUGS (24)
  1. EPINEPHRINE [Concomitant]
     Indication: PRODUCT USED FOR UNKNOWN INDICATION
     Dosage: TITRATED
     Route: 042
     Dates: start: 20030124, end: 20030124
  2. TRASYLOL [Suspect]
     Indication: CORONARY ARTERY BYPASS
     Dosage: 200 ML IV FOLLOWED BY 50 ML / HOUR DRIP RATE
     Route: 042
     Dates: start: 20030124, end: 20030124
  3. TEMAZEPAM [Concomitant]
     Indication: PRODUCT USED FOR UNKNOWN INDICATION
     Dosage: 30 MG, UNK
     Route: 048
     Dates: start: 20030121
  4. ESMOLOL HCL [Concomitant]
     Indication: PRODUCT USED FOR UNKNOWN INDICATION
     Dosage: 50 MG/HR, UNK
     Route: 042
     Dates: start: 20030124, end: 20030124
  5. HEPARIN [Concomitant]
     Indication: PRODUCT USED FOR UNKNOWN INDICATION
     Dosage: 24000 U, UNK
     Route: 042
     Dates: start: 20030124, end: 20030124
  6. VECURONIUM BROMIDE [Concomitant]
     Indication: PRODUCT USED FOR UNKNOWN INDICATION
     Dosage: 50 MG, UNK
     Route: 042
     Dates: start: 20030124, end: 20030124
  7. VERSED [Concomitant]
     Indication: PRODUCT USED FOR UNKNOWN INDICATION
     Dosage: 15 MG, UNK
     Route: 042
     Dates: start: 20030124, end: 20030124
  8. SUFENTANIL CITRATE [Concomitant]
     Indication: PRODUCT USED FOR UNKNOWN INDICATION
     Dosage: 500 MCG
     Route: 042
     Dates: start: 20030124, end: 20030124
  9. AMLODIPINE [Concomitant]
     Indication: PRODUCT USED FOR UNKNOWN INDICATION
     Dosage: 5 MG, UNK
     Route: 048
     Dates: start: 20030122
  10. HEPARIN [Concomitant]
     Dosage: 30000 UNITS
     Dates: start: 20030124, end: 20030124
  11. ISOVUE-128 [Concomitant]
     Indication: CATHETERISATION CARDIAC
     Dosage: 60 ML, UNK
     Dates: start: 20030117
  12. LASIX [Concomitant]
     Indication: PRODUCT USED FOR UNKNOWN INDICATION
     Dosage: 40 MG, UNK
     Route: 042
     Dates: start: 20030120
  13. LIDOCAINE [Concomitant]
     Indication: PRODUCT USED FOR UNKNOWN INDICATION
     Dosage: 220 MG, UNK
     Route: 042
     Dates: start: 20030124, end: 20030124
  14. SODIUM NITROPRUSSIDE [Concomitant]
     Indication: PRODUCT USED FOR UNKNOWN INDICATION
     Dosage: TITRATED
     Route: 042
     Dates: start: 20030124, end: 20030124
  15. TRASYLOL [Suspect]
     Dosage: 50 ML/H DRIP
     Route: 042
     Dates: start: 20030124, end: 20030124
  16. NITROGLYCERIN [Concomitant]
     Indication: PRODUCT USED FOR UNKNOWN INDICATION
     Dosage: 0.4 MG, UNK
     Route: 060
     Dates: start: 20030120
  17. PRAVASTATIN [Concomitant]
     Indication: PRODUCT USED FOR UNKNOWN INDICATION
     Dosage: 20 MG, UNK
     Route: 048
     Dates: start: 20030120
  18. AMIODARONE HCL [Concomitant]
     Indication: PRODUCT USED FOR UNKNOWN INDICATION
     Dosage: INFUSION
     Route: 042
     Dates: start: 20030124
  19. DOPAMINE [Concomitant]
     Indication: PRODUCT USED FOR UNKNOWN INDICATION
     Dosage: 2.5 MCG/KG/MIN
     Route: 042
     Dates: start: 20030124, end: 20030124
  20. VANCOMYCIN [Concomitant]
     Indication: PRODUCT USED FOR UNKNOWN INDICATION
     Dosage: 500 MG, UNK
     Route: 042
     Dates: start: 20030124, end: 20030124
  21. PROTAMINE SULFATE [Concomitant]
     Indication: PRODUCT USED FOR UNKNOWN INDICATION
     Dosage: 122 MG, UNK
     Dates: start: 20030124, end: 20030124
  22. TRASYLOL [Suspect]
     Dosage: 200 ML CARDIO PULMONARY BYPASS
     Dates: start: 20030124, end: 20030124
  23. CEFAZOLIN [Concomitant]
     Indication: PRODUCT USED FOR UNKNOWN INDICATION
     Dosage: 1 G, UNK
     Route: 042
     Dates: start: 20030122
  24. RED BLOOD CELLS [Concomitant]
     Indication: PRODUCT USED FOR UNKNOWN INDICATION
     Dosage: 5 U, INTRAOPERATIVE

REACTIONS (12)
  - ANHEDONIA [None]
  - RENAL INJURY [None]
  - DEATH [None]
  - STRESS [None]
  - RENAL IMPAIRMENT [None]
  - UNEVALUABLE EVENT [None]
  - FEAR [None]
  - ANXIETY [None]
  - PAIN [None]
  - RENAL FAILURE [None]
  - EMOTIONAL DISTRESS [None]
  - INJURY [None]
